FAERS Safety Report 22088504 (Version 1)
Quarter: 2023Q1

REPORT INFORMATION
  Report Type: Report from Study
  Country: US (occurrence: US)
  Receive Date: 20230313
  Receipt Date: 20230313
  Transmission Date: 20230418
  Serious: Yes (Other)
  Sender: FDA-Public Use
  Company Number: US-MYLANLABS-2023M1024663

PATIENT

DRUGS (2)
  1. HEPARIN [Suspect]
     Active Substance: HEPARIN SODIUM
     Indication: Anticoagulant therapy
     Dosage: UNK; PERI-OPERATIVELY
     Route: 065
  2. COUMADIN [Suspect]
     Active Substance: WARFARIN SODIUM
     Indication: Anticoagulant therapy
     Dosage: UNK; WITH GOAL INR 2-3 AT DISCHARGE FOR 3-6 MONTHS
     Route: 065

REACTIONS (1)
  - Drug ineffective [Unknown]
